FAERS Safety Report 8462610-4 (Version None)
Quarter: 2012Q2

REPORT INFORMATION
  Report Type: 
  Country: None (occurrence: None)
  Receive Date: 20120625
  Receipt Date: 20120621
  Transmission Date: 20120825
  Serious: Yes (Life-Threatening)
  Sender: FDA-Public Use
  Company Number: DE-ASTRAZENECA-2012SE41657

PATIENT
  Age: 87 Year
  Sex: Female
  Weight: 70 kg

DRUGS (3)
  1. RAMIPRIL [Concomitant]
     Indication: HYPERTENSION
     Route: 048
     Dates: start: 20060101
  2. MARCUMAR [Suspect]
     Indication: DEEP VEIN THROMBOSIS
     Dosage: NACH INR
     Route: 048
     Dates: start: 20090101, end: 20110101
  3. METOPROLOL SUCCINATE [Suspect]
     Indication: HYPERTENSION
     Dosage: TWO TIMES A DAY
     Route: 048
     Dates: start: 20110101

REACTIONS (2)
  - ACUTE HEPATIC FAILURE [None]
  - CHOLESTASIS [None]
